FAERS Safety Report 8896088 (Version 4)
Quarter: 2013Q2

REPORT INFORMATION
  Report Type: Spontaneous
  Country: US (occurrence: US)
  Receive Date: 20121107
  Receipt Date: 20130424
  Transmission Date: 20140414
  Serious: Yes (Hospitalization, Disabling, Other)
  Sender: FDA-Public Use
  Company Number: US-009507513-1210USA012665

PATIENT
  Sex: Female

DRUGS (8)
  1. FOSAMAX [Suspect]
     Indication: OSTEOPOROSIS
     Dosage: UNK
     Route: 048
     Dates: start: 1995
  2. FOSAMAX [Suspect]
     Indication: OSTEOPENIA
     Dosage: 70 MG, QW
     Route: 048
     Dates: end: 2006
  3. FOSAMAX PLUS D [Suspect]
     Indication: OSTEOPOROSIS
     Dosage: 70 MG/ 2800 IU, QW
     Route: 048
     Dates: start: 2006, end: 201104
  4. FOSAMAX PLUS D [Suspect]
     Indication: OSTEOPENIA
  5. ATENOLOL [Concomitant]
     Dosage: 25 MG, UNK
     Dates: start: 1990
  6. VITAMINS (UNSPECIFIED) [Concomitant]
     Dosage: UNK, QD
     Dates: start: 1990
  7. SELECTIVE ESTROGEN RECEPTOR MODULATOR (UNSPECIFIED) [Concomitant]
     Dosage: UNK
     Dates: start: 201009
  8. HORMONES (UNSPECIFIED) [Concomitant]
     Dosage: UNK
     Dates: start: 1997, end: 201003

REACTIONS (24)
  - Femur fracture [Not Recovered/Not Resolved]
  - Femur fracture [Not Recovered/Not Resolved]
  - Femur fracture [Unknown]
  - Breast cancer [Unknown]
  - Parathyroidectomy [Unknown]
  - Low turnover osteopathy [Not Recovered/Not Resolved]
  - Cholecystectomy [Unknown]
  - Erythema infectiosum [Unknown]
  - Hypoparathyroidism [Unknown]
  - Endodontic procedure [Unknown]
  - White blood cell count decreased [Unknown]
  - Breast lump removal [Unknown]
  - Injury [Unknown]
  - Tooth disorder [Unknown]
  - Gallbladder disorder [Unknown]
  - Enchondroma [Unknown]
  - Diverticulum [Unknown]
  - Varicella [Unknown]
  - Fibromyalgia [Unknown]
  - Female sterilisation [Unknown]
  - Bone lesion [Unknown]
  - Osteoarthritis [Unknown]
  - Drug hypersensitivity [Unknown]
  - Pain in extremity [Unknown]
